FAERS Safety Report 4433302-3 (Version None)
Quarter: 2004Q3

REPORT INFORMATION
  Report Type: 
  Country: None (occurrence: None)
  Receive Date: 20040818
  Receipt Date: 20040402
  Transmission Date: 20050211
  Serious: Yes (Other)
  Sender: FDA-Public Use
  Company Number: 601215

PATIENT
  Age: 18 Year
  Sex: Male

DRUGS (2)
  1. FEIBA VH IMMUNO [Suspect]
     Indication: FRACTURE
     Dosage: 2500 UNITS; ONCE; INTRAVENOUS
     Route: 042
     Dates: start: 20030620, end: 20030620
  2. CEFTRIAXONE [Concomitant]

REACTIONS (1)
  - ANAPHYLACTIC REACTION [None]
